FAERS Safety Report 25994395 (Version 1)
Quarter: 2025Q4

REPORT INFORMATION
  Report Type: Spontaneous
  Country: IR (occurrence: None)
  Receive Date: 20251104
  Receipt Date: 20251104
  Transmission Date: 20260118
  Serious: Yes (Hospitalization)
  Sender: ENCUBE ETHICALS PVT. LTD.
  Company Number: IR-Encube-002549

PATIENT
  Age: 79 Year
  Sex: Female

DRUGS (2)
  1. METRONIDAZOLE [Suspect]
     Active Substance: METRONIDAZOLE
     Indication: Hepatic amoebiasis
  2. MEROPENEM [Concomitant]
     Active Substance: MEROPENEM
     Indication: Hepatic amoebiasis

REACTIONS (2)
  - Toxic encephalopathy [Recovering/Resolving]
  - Off label use [Unknown]
